FAERS Safety Report 8595729-8 (Version None)
Quarter: 2012Q3

REPORT INFORMATION
  Report Type: 
  Country: None (occurrence: None)
  Receive Date: 20120815
  Receipt Date: 20120810
  Transmission Date: 20120928
  Serious: Yes (Other)
  Sender: FDA-Public Use
  Company Number: PHHY2012GB053818

PATIENT
  Age: 36 Year
  Sex: Female
  Weight: 72 kg

DRUGS (4)
  1. METFORMIN HYDROCHLORIDE [Suspect]
     Indication: TYPE 2 DIABETES MELLITUS
  2. GLICLAZIDE [Suspect]
     Indication: TYPE 2 DIABETES MELLITUS
  3. ROSIGLITAZONE [Suspect]
     Indication: TYPE 2 DIABETES MELLITUS
  4. INSULIN [Suspect]

REACTIONS (6)
  - OBESITY [None]
  - HYPERTENSION [None]
  - APHASIA [None]
  - METABOLIC DISORDER [None]
  - CEREBROVASCULAR ACCIDENT [None]
  - HEMIPARESIS [None]
